FAERS Safety Report 21829071 (Version 1)
Quarter: 2023Q1

REPORT INFORMATION
  Report Type: Report from Study
  Country: US (occurrence: US)
  Receive Date: 20230106
  Receipt Date: 20230106
  Transmission Date: 20230418
  Serious: Yes (Other)
  Sender: FDA-Public Use
  Company Number: US-ABBVIE-4258806

PATIENT
  Sex: Male

DRUGS (1)
  1. VENCLEXTA [Suspect]
     Active Substance: VENETOCLAX
     Indication: Product used for unknown indication
     Route: 048

REACTIONS (6)
  - Transfusion [Unknown]
  - Platelet count abnormal [Unknown]
  - Laboratory test abnormal [Unknown]
  - Pain [Unknown]
  - Decreased appetite [Unknown]
  - Haemoglobin abnormal [Unknown]
